FAERS Safety Report 18380695 (Version 2)
Quarter: 2020Q4

REPORT INFORMATION
  Report Type: Spontaneous
  Country: US (occurrence: US)
  Receive Date: 20201014
  Receipt Date: 20201211
  Transmission Date: 20210114
  Serious: Yes (Hospitalization, Other)
  Sender: FDA-Public Use
  Company Number: US-SA-2020SA283571

PATIENT

DRUGS (1)
  1. ZANTAC [Suspect]
     Active Substance: RANITIDINE HYDROCHLORIDE
     Dosage: 4-5 TIMES A WEEK ON AVERAGE (USED BY PRESCRIPTION AND OVER THE COUNTER)
     Route: 048
     Dates: end: 2018

REACTIONS (10)
  - Throat cancer [Unknown]
  - Deformity [Unknown]
  - Injury [Unknown]
  - Oesophageal carcinoma [Unknown]
  - Tonsil cancer [Unknown]
  - Hospitalisation [Unknown]
  - Pain [Unknown]
  - Nasal neoplasm [Unknown]
  - Anxiety [Unknown]
  - Anhedonia [Unknown]

NARRATIVE: CASE EVENT DATE: 200903
